FAERS Safety Report 12396525 (Version 1)
Quarter: 2016Q2

REPORT INFORMATION
  Report Type: Spontaneous
  Country: US (occurrence: None)
  Receive Date: 20160523
  Receipt Date: 20160523
  Transmission Date: 20160815
  Serious: Yes (Other)
  Sender: FDA-Public Use
  Company Number: None

PATIENT
  Age: 72 Year
  Weight: 63.5 kg

DRUGS (5)
  1. VITAMIN D [Concomitant]
     Active Substance: CHOLECALCIFEROL
  2. FOSINOPRIL-HCTZ 10-12.5MG TAB [Suspect]
     Active Substance: FOSINOPRIL SODIUM\HYDROCHLOROTHIAZIDE
     Indication: HYPERTENSION
     Route: 048
     Dates: start: 20160413, end: 20160509
  3. CALCIUM [Concomitant]
     Active Substance: CALCIUM
  4. VITAMIN C [Concomitant]
     Active Substance: ASCORBIC ACID
  5. POTASSIUM [Concomitant]
     Active Substance: POTASSIUM

REACTIONS (5)
  - Product physical issue [None]
  - Headache [None]
  - Blood pressure inadequately controlled [None]
  - Disorientation [None]
  - Product substitution issue [None]

NARRATIVE: CASE EVENT DATE: 20160506
